FAERS Safety Report 6209110-X (Version None)
Quarter: 2009Q2

REPORT INFORMATION
  Report Type: 
  Country: None (occurrence: None)
  Receive Date: 20090522
  Receipt Date: 20090123
  Transmission Date: 20091009
  Serious: No
  Sender: FDA-Public Use
  Company Number: 8041830

PATIENT
  Age: 75 Year
  Sex: Male
  Weight: 89 kg

DRUGS (13)
  1. CIMZIA [Suspect]
     Indication: CROHN'S DISEASE
     Dosage: 400 MG SC
     Route: 058
     Dates: start: 20080625
  2. CYMBALTA [Concomitant]
  3. FOSAMAX [Concomitant]
  4. NEURONTIN [Concomitant]
  5. NEXIUM [Concomitant]
  6. WELLBUTRIN [Concomitant]
  7. ZETIA [Concomitant]
  8. LORTAB [Concomitant]
  9. VITAMIN B COMPLEX CAP [Concomitant]
  10. CENTRUM [Concomitant]
  11. CALCIUM D [Concomitant]
  12. FISH OIL [Concomitant]
  13. IRON [Concomitant]

REACTIONS (2)
  - ABDOMINAL DISTENSION [None]
  - ABDOMINAL PAIN [None]
